FAERS Safety Report 7850078-8 (Version None)
Quarter: 2011Q4

REPORT INFORMATION
  Report Type: 
  Country: None (occurrence: None)
  Receive Date: 20111026
  Receipt Date: 20111020
  Transmission Date: 20120403
  Serious: Yes (Other)
  Sender: FDA-Public Use
  Company Number: GB-JNJFOC-20110811003

PATIENT
  Sex: Male

DRUGS (8)
  1. SIMPONI [Suspect]
     Indication: ANKYLOSING SPONDYLITIS
     Route: 058
     Dates: start: 20110501
  2. ASPIRIN [Concomitant]
  3. DILTIAZEM HCL [Concomitant]
  4. OMEPRAZOLE [Concomitant]
  5. SIMPONI [Suspect]
     Route: 058
     Dates: start: 20110701
  6. ISMN [Concomitant]
  7. SIMVASTATIN [Concomitant]
  8. LISINOPRIL [Concomitant]

REACTIONS (1)
  - ANGINA UNSTABLE [None]
